FAERS Safety Report 21098146 (Version 1)
Quarter: 2022Q3

REPORT INFORMATION
  Report Type: Other
  Country: PK (occurrence: None)
  Receive Date: 20220719
  Receipt Date: 20220719
  Transmission Date: 20221026
  Serious: Yes (Other)
  Sender: FDA-Public Use
  Company Number: PK-ROCHE-3095163

PATIENT
  Age: 70 Year
  Sex: Female

DRUGS (2)
  1. HERCEPTIN [Suspect]
     Active Substance: TRASTUZUMAB
     Indication: Breast cancer
     Dosage: 600 MG,1 VIAL
     Route: 058
     Dates: start: 20211207, end: 20220122
  2. PERJETA [Suspect]
     Active Substance: PERTUZUMAB
     Indication: Breast cancer
     Route: 042
     Dates: start: 20211207, end: 20220122

REACTIONS (3)
  - Cardiac disorder [Unknown]
  - Ejection fraction decreased [Unknown]
  - Cardiac dysfunction [Unknown]
